FAERS Safety Report 15540834 (Version 2)
Quarter: 2019Q1

REPORT INFORMATION
  Report Type: Spontaneous
  Country: US (occurrence: US)
  Receive Date: 20181023
  Receipt Date: 20190125
  Transmission Date: 20190417
  Serious: Yes (Other)
  Sender: FDA-Public Use
  Company Number: US-BAYER-2018-195458

PATIENT
  Age: 28 Year
  Sex: Female
  Weight: 92.06 kg

DRUGS (3)
  1. MIRENA [Suspect]
     Active Substance: LEVONORGESTREL
     Dosage: 20 MCG/24HR, CONT
     Route: 015
  2. MIRENA [Suspect]
     Active Substance: LEVONORGESTREL
     Dosage: 20 MCG/24HR, CONT
     Route: 015
     Dates: start: 201802
  3. MIRENA [Suspect]
     Active Substance: LEVONORGESTREL
     Indication: INTRA-UTERINE CONTRACEPTIVE DEVICE INSERTION

REACTIONS (6)
  - Abdominal pain lower [None]
  - Pelvic pain [None]
  - Device expulsion [None]
  - Menstrual disorder [None]
  - Genital haemorrhage [None]
  - Dysmenorrhoea [None]

NARRATIVE: CASE EVENT DATE: 201804
